FAERS Safety Report 5412410-4 (Version None)
Quarter: 2007Q3

REPORT INFORMATION
  Report Type: 
  Country: None (occurrence: None)
  Receive Date: 20070813
  Receipt Date: 20070802
  Transmission Date: 20080115
  Serious: Yes (Hospitalization, Other)
  Sender: FDA-Public Use
  Company Number: US-MERCK-0706USA04816

PATIENT
  Age: 73 Year
  Sex: Female

DRUGS (3)
  1. FOSAMAX [Suspect]
     Indication: OSTEOPOROSIS
     Route: 048
     Dates: start: 19971121, end: 20040520
  2. FOSAMAX [Suspect]
     Route: 048
  3. [THERAPY UNSPECIFIED] [Concomitant]
     Route: 065
     Dates: start: 19930101

REACTIONS (6)
  - ANXIETY [None]
  - ARTHROPATHY [None]
  - DEPRESSION [None]
  - GASTROINTESTINAL DISORDER [None]
  - HYPOAESTHESIA ORAL [None]
  - OSTEONECROSIS [None]
